FAERS Safety Report 5301563-4 (Version None)
Quarter: 2007Q2

REPORT INFORMATION
  Report Type: 
  Country: None (occurrence: None)
  Receive Date: 20070412
  Receipt Date: 20070330
  Transmission Date: 20071010
  Serious: Yes (Hospitalization)
  Sender: FDA-Public Use
  Company Number: 2006RR-02741

PATIENT
  Age: 49 Year
  Sex: Male
  Weight: 104.5 kg

DRUGS (4)
  1. CLARITIN [Suspect]
     Indication: SEASONAL ALLERGY
     Dosage: 4 MG, QD, ORAL
     Route: 048
     Dates: start: 20060201
  2. DISPERSIBLE ASPIRIN TABLET BP 75MG (ASPIRIN) [Concomitant]
  3. ATORVASTATIN CALCIUM [Concomitant]
  4. LISINOPRIL [Concomitant]

REACTIONS (1)
  - ATRIAL FIBRILLATION [None]
